FAERS Safety Report 10667417 (Version 1)
Quarter: 2014Q4

REPORT INFORMATION
  Report Type: Spontaneous
  Country: NL (occurrence: None)
  Receive Date: 20141218
  Receipt Date: 20141218
  Transmission Date: 20150529
  Serious: Yes (Death)
  Sender: FDA-Public Use
  Company Number: 2014NL010805

PATIENT
  Age: 86 Year
  Sex: Male

DRUGS (1)
  1. ELIGARD [Suspect]
     Active Substance: LEUPROLIDE ACETATE
     Indication: PROSTATE CANCER
     Dosage: ONCE EVERY SIX MONTHS
     Route: 058
     Dates: start: 20140722

REACTIONS (2)
  - Terminal state [None]
  - Prostate cancer [None]

NARRATIVE: CASE EVENT DATE: 20140828
